FAERS Safety Report 7494399-X (Version None)
Quarter: 2011Q2

REPORT INFORMATION
  Report Type: 
  Country: None (occurrence: None)
  Receive Date: 20110520
  Receipt Date: 20110511
  Transmission Date: 20111010
  Serious: Yes (Other)
  Sender: FDA-Public Use
  Company Number: US-ASTRAZENECA-2011SE28597

PATIENT
  Age: 72 Year
  Sex: Female

DRUGS (2)
  1. CRESTOR [Suspect]
     Route: 048
  2. CRESTOR [Suspect]
     Dosage: 40 MG
     Route: 048

REACTIONS (3)
  - MYOCARDIAL INFARCTION [None]
  - INCORRECT DOSE ADMINISTERED [None]
  - STRESS CARDIOMYOPATHY [None]
